FAERS Safety Report 26059726 (Version 2)
Quarter: 2025Q4

REPORT INFORMATION
  Report Type: Report from Study
  Country: US (occurrence: US)
  Receive Date: 20251118
  Receipt Date: 20251223
  Transmission Date: 20260118
  Serious: Yes (Death, Hospitalization)
  Sender: EISAI
  Company Number: US-Eisai-EC-2025-198648

PATIENT
  Age: 61 Year
  Sex: Female
  Weight: 60.3 kg

DRUGS (1)
  1. LENVIMA [Suspect]
     Active Substance: LENVATINIB
     Indication: Endometrial cancer
     Route: 048
     Dates: start: 20251015

REACTIONS (10)
  - Ascites [Fatal]
  - Decreased appetite [Fatal]
  - Abdominal pain [Fatal]
  - Renal injury [Fatal]
  - Malignant neoplasm progression [Fatal]
  - Constipation [Unknown]
  - Dehydration [Unknown]
  - Weight decreased [Unknown]
  - Oedema peripheral [Unknown]
  - Cough [Unknown]

NARRATIVE: CASE EVENT DATE: 20250101
